FAERS Safety Report 8186673-9 (Version None)
Quarter: 2012Q1

REPORT INFORMATION
  Report Type: 
  Country: None (occurrence: None)
  Receive Date: 20120305
  Receipt Date: 20120305
  Transmission Date: 20120608
  Serious: Yes (Life-Threatening, Hospitalization)
  Sender: FDA-Public Use
  Company Number: None

PATIENT
  Age: 48 Year
  Sex: Male
  Weight: 242 kg

DRUGS (1)
  1. PRADAXA [Suspect]
     Dosage: 150MG TWICE A DAY PO
     Route: 048
     Dates: end: 20120119

REACTIONS (2)
  - UPPER GASTROINTESTINAL HAEMORRHAGE [None]
  - HAEMOGLOBIN DECREASED [None]
